FAERS Safety Report 6153543-7 (Version None)
Quarter: 2009Q2

REPORT INFORMATION
  Report Type: 
  Country: None (occurrence: None)
  Receive Date: 20090413
  Receipt Date: 20090410
  Transmission Date: 20091009
  Serious: Yes (Death, Hospitalization)
  Sender: FDA-Public Use
  Company Number: US-ASTRAZENECA-2008UW27540

PATIENT
  Sex: Female
  Weight: 86.2 kg

DRUGS (5)
  1. SEROQUEL [Suspect]
     Indication: MENTAL DISORDER
     Dosage: 100 MG TO 200 MG
     Route: 048
     Dates: start: 20020101, end: 20061102
  2. HALDOL [Concomitant]
  3. RISPERDAL [Concomitant]
  4. THORAZINE [Concomitant]
  5. ZYPREXA [Concomitant]

REACTIONS (3)
  - DEATH [None]
  - DIABETES MELLITUS [None]
  - HOSPITALISATION [None]
